FAERS Safety Report 8772088 (Version 1)
Quarter: 2012Q4

REPORT INFORMATION
  Report Type: 
  Country: US (occurrence: US)
  Receive Date: 20120906
  Receipt Date: 20120906
  Transmission Date: 20130627
  Serious: Yes (Other)
  Sender: FDA-Public Use
  Company Number: US-SHIRE-ALL1-2012-04133

PATIENT
  Age: 49 Year
  Sex: Female

DRUGS (1)
  1. LIALDA [Suspect]
     Indication: PRODUCT USED FOR UNKNOWN INDICATION
     Dosage: 2.4 g, Unknown
     Route: 048

REACTIONS (1)
  - Systemic lupus erythematosus [Not Recovered/Not Resolved]
